FAERS Safety Report 18208086 (Version 1)
Quarter: 2020Q3

REPORT INFORMATION
  Report Type: Report from Study
  Country: US (occurrence: US)
  Receive Date: 20200828
  Receipt Date: 20200828
  Transmission Date: 20201103
  Serious: Yes (Hospitalization)
  Sender: FDA-Public Use
  Company Number: US-BIOVITRUM-2020US3835

PATIENT
  Age: 14 Year
  Sex: Female

DRUGS (1)
  1. KINERET [Suspect]
     Active Substance: ANAKINRA
     Indication: HAEMOPHAGOCYTIC LYMPHOHISTIOCYTOSIS
     Route: 058
     Dates: start: 20200205

REACTIONS (7)
  - Lack of injection site rotation [Recovered/Resolved]
  - Off label use [Not Recovered/Not Resolved]
  - Product use complaint [Unknown]
  - Hepatic enzyme increased [Unknown]
  - Injection site discolouration [Unknown]
  - Injection site rash [Unknown]
  - Injection site mass [Unknown]

NARRATIVE: CASE EVENT DATE: 20200205
